FAERS Safety Report 5522458-7 (Version None)
Quarter: 2007Q4

REPORT INFORMATION
  Report Type: 
  Country: None (occurrence: None)
  Receive Date: 20071120
  Receipt Date: 20071108
  Transmission Date: 20080405
  Serious: Yes (Other)
  Sender: FDA-Public Use
  Company Number: PHBS2006GB14803

PATIENT
  Age: 64 Year
  Sex: Male

DRUGS (4)
  1. COMTESS [Suspect]
     Indication: PARKINSON'S DISEASE
     Dosage: 200 MG, QID
     Route: 048
     Dates: start: 20050101, end: 20051201
  2. SINEMET [Concomitant]
     Indication: PARKINSON'S DISEASE
     Dosage: 125 MG UP TO 8 TIMES/DAY
  3. SELEGILINE HCL [Concomitant]
     Indication: PARKINSON'S DISEASE
     Dosage: 5 MG, QD
  4. ROPINIROLE HCL [Concomitant]
     Indication: PARKINSON'S DISEASE
     Dosage: 5 MG, QID

REACTIONS (5)
  - DENTAL CARIES [None]
  - DRY MOUTH [None]
  - GINGIVAL DISORDER [None]
  - PROSTATE CANCER [None]
  - TOOTH EXTRACTION [None]
